FAERS Safety Report 18337566 (Version 3)
Quarter: 2021Q1

REPORT INFORMATION
  Report Type: Report from Study
  Country: None (occurrence: US)
  Receive Date: 20201002
  Receipt Date: 20210121
  Transmission Date: 20210419
  Serious: Yes (Hospitalization, Other)
  Sender: FDA-Public Use
  Company Number: US-ABBVIE-20K-163-3587287-00

PATIENT
  Sex: Female
  Weight: 49.94 kg

DRUGS (1)
  1. HUMIRA [Suspect]
     Active Substance: ADALIMUMAB
     Indication: HIDRADENITIS
     Dosage: CF, EVERY MONDAY SINCE 2018 OR 2019
     Route: 058

REACTIONS (4)
  - Wound [Recovering/Resolving]
  - Sweat gland infection [Not Recovered/Not Resolved]
  - Infected dermal cyst [Recovering/Resolving]
  - Hypophagia [Recovered/Resolved]

NARRATIVE: CASE EVENT DATE: 2020
